FAERS Safety Report 6314048-3 (Version None)
Quarter: 2009Q3

REPORT INFORMATION
  Report Type: 
  Country: None (occurrence: None)
  Receive Date: 20090818
  Receipt Date: 20090813
  Transmission Date: 20100115
  Serious: Yes (Other)
  Sender: FDA-Public Use
  Company Number: ZA-ALLERGAN-0911334US

PATIENT
  Age: 76 Year
  Sex: Male

DRUGS (3)
  1. ACULAR [Suspect]
     Indication: DRUG USE FOR UNKNOWN INDICATION
     Route: 047
  2. PRED FORTE [Suspect]
     Indication: DRUG USE FOR UNKNOWN INDICATION
  3. ZYMAR [Suspect]
     Indication: DRUG USE FOR UNKNOWN INDICATION

REACTIONS (6)
  - CORNEAL EPITHELIUM DEFECT [None]
  - CORNEAL THINNING [None]
  - EYE PAIN [None]
  - IRIDOCELE [None]
  - OCULAR HYPERAEMIA [None]
  - VISUAL ACUITY REDUCED [None]
